FAERS Safety Report 7375249-9 (Version None)
Quarter: 2011Q1

REPORT INFORMATION
  Report Type: 
  Country: None (occurrence: None)
  Receive Date: 20110315
  Receipt Date: 20110303
  Transmission Date: 20110831
  Serious: Yes (Other)
  Sender: FDA-Public Use
  Company Number: 2011SP010018

PATIENT
  Age: 75 Year
  Sex: Male

DRUGS (2)
  1. DULERA TABLET [Suspect]
     Indication: ASTHMA
     Dosage: INH
     Route: 055
     Dates: start: 20110101
  2. SYMBICORT [Concomitant]

REACTIONS (1)
  - GOUT [None]
